FAERS Safety Report 9951303 (Version 2)
Quarter: 2014Q1

REPORT INFORMATION
  Report Type: Report from Study
  Country: US (occurrence: US)
  Receive Date: 20140304
  Receipt Date: 20140304
  Transmission Date: 20141002
  Serious: No
  Sender: FDA-Public Use
  Company Number: US-ABBVIE-10P-163-0670681-00

PATIENT
  Sex: Female
  Weight: 74.91 kg

DRUGS (5)
  1. HUMIRA 40 MG/0.8 ML PEN [Suspect]
     Indication: CROHN^S DISEASE
     Route: 058
     Dates: start: 2001
  2. METFORMIN [Concomitant]
     Indication: DIABETES MELLITUS
  3. NADOLOL [Concomitant]
     Indication: HYPERTENSION
  4. PRILOSEC [Concomitant]
     Indication: GASTROOESOPHAGEAL REFLUX DISEASE
  5. LISINOPRIL [Concomitant]
     Indication: HYPERTENSION

REACTIONS (5)
  - Malaise [Not Recovered/Not Resolved]
  - Inappropriate schedule of drug administration [Recovered/Resolved]
  - Nausea [Recovered/Resolved]
  - Vomiting [Recovered/Resolved]
  - Rash [Recovered/Resolved]
